FAERS Safety Report 7169814-1 (Version None)
Quarter: 2010Q4

REPORT INFORMATION
  Report Type: 
  Country: None (occurrence: None)
  Receive Date: 20101217
  Receipt Date: 20101203
  Transmission Date: 20110411
  Serious: Yes (Other)
  Sender: FDA-Public Use
  Company Number: PHHY2010MX82630

PATIENT
  Sex: Female

DRUGS (6)
  1. GENTEAL (NVO) [Suspect]
     Indication: DRY EYE
     Dosage: 02 DROPS EVERY 04 HOURS (03 MG/ML)
     Dates: start: 20100610
  2. COLLYRIUM [Concomitant]
  3. NITROFURANTOIN [Concomitant]
  4. FENAZOPIRIDINA [Concomitant]
     Dosage: 03 TABLET, DAILY
  5. NORFLOXACIN [Concomitant]
     Dosage: 02 TABLET, DAILY
  6. PARACETAMOL [Concomitant]
     Dosage: 3 TABLET, DAILY

REACTIONS (5)
  - BLOOD GLUCOSE INCREASED [None]
  - BLOOD PRESSURE INCREASED [None]
  - ESCHERICHIA INFECTION [None]
  - PYREXIA [None]
  - URINARY TRACT INFECTION [None]
